FAERS Safety Report 13720315 (Version 1)
Quarter: 2017Q3

REPORT INFORMATION
  Report Type: Other
  Country: DE (occurrence: DE)
  Receive Date: 20170706
  Receipt Date: 20170706
  Transmission Date: 20171127
  Serious: Yes (Hospitalization)
  Sender: FDA-Public Use
  Company Number: DE-LUPIN PHARMACEUTICALS INC.-E2B_00007256

PATIENT
  Age: 46 Year
  Sex: Male
  Weight: 85 kg

DRUGS (5)
  1. SIMVASTATIN. [Suspect]
     Active Substance: SIMVASTATIN
     Indication: HYPERCHOLESTEROLAEMIA
     Dosage: 20 MG,UNK,UNKNOWN
     Route: 048
  2. EZETROL [Concomitant]
     Active Substance: EZETIMIBE
     Indication: HYPERCHOLESTEROLAEMIA
     Dosage: 10 MG,UNK,UNKNOWN
     Route: 048
     Dates: start: 20131108
  3. ZODIN [Concomitant]
     Indication: HYPERCHOLESTEROLAEMIA
     Dosage: 1000 MG,UNK,UNKNOWN
     Route: 048
     Dates: start: 20131108
  4. INEGY [Suspect]
     Active Substance: EZETIMIBE\SIMVASTATIN
     Indication: HYPERCHOLESTEROLAEMIA
     Dosage: UNK UNK,UNK,UNKNOWN
     Route: 048
     Dates: start: 20130225, end: 20130610
  5. ATORVASTATIN [Suspect]
     Active Substance: ATORVASTATIN
     Indication: HYPERCHOLESTEROLAEMIA
     Dosage: 20 MG,UNK,UNKNOWN
     Route: 048
     Dates: start: 20130122, end: 20131108

REACTIONS (2)
  - Myalgia [Not Recovered/Not Resolved]
  - Arthralgia [Not Recovered/Not Resolved]

NARRATIVE: CASE EVENT DATE: 20130320
